FAERS Safety Report 9749491 (Version 1)
Quarter: 2013Q4

REPORT INFORMATION
  Report Type: Spontaneous
  Country: US (occurrence: US)
  Receive Date: 20131212
  Receipt Date: 20131212
  Transmission Date: 20140711
  Serious: Yes (Other)
  Sender: FDA-Public Use
  Company Number: US-PFIZER INC-2013353078

PATIENT
  Age: 43 Year
  Sex: Female
  Weight: 90.7 kg

DRUGS (3)
  1. CELEBREX [Suspect]
     Indication: FIBROMYALGIA
     Dosage: 200 MG, 1X/DAY
     Route: 048
     Dates: start: 2000
  2. CELEBREX [Suspect]
     Indication: ARTHRITIS
  3. CELEBREX [Suspect]
     Indication: PAIN

REACTIONS (8)
  - Off label use [Unknown]
  - Foot fracture [Unknown]
  - Fall [Unknown]
  - Bone disorder [Unknown]
  - Meniscus injury [Unknown]
  - Appendix disorder [Unknown]
  - Gallbladder disorder [Unknown]
  - Uterine disorder [Unknown]
